FAERS Safety Report 8892101 (Version 1)
Quarter: 2012Q4

REPORT INFORMATION
  Report Type: Spontaneous
  Country: US (occurrence: None)
  Receive Date: 20121031
  Receipt Date: 20121031
  Transmission Date: 20130627
  Serious: Yes (Other)
  Sender: FDA-Public Use
  Company Number: AUR-APL-2012-04611

PATIENT
  Age: 7 Year
  Sex: Female

DRUGS (15)
  1. LEVOFLOXACIN [Suspect]
     Indication: PSEUDOMONAS INFECTION
     Dosage: 10 mg/kg (10 mg/kg, 1 in 1 d), unknown
  2. CIPROFLOXACIN (CIPROFLOXACIN) [Suspect]
     Indication: PSEUDOMONAS INFECTION
     Dosage: 30 mg/kg (15 mg/kg, 2 in 1d), unknown
  3. CEFTAZIDIME [Suspect]
     Indication: PSEUDOMONAS INFECTION
     Dosage: 100 mg (50 mg, 2 in 1 d), intravenous
     Route: 042
  4. CEFEPIME [Suspect]
     Indication: PSEUDOMONAS INFECTION
     Dosage: 100 mg/kg (50 mg/kg, 2 in 1 d), unknown
  5. TOBRAMYCIN [Suspect]
     Indication: PSEUDOMONAS INFECTION
     Dosage: 8 mg/kg (8 mg/kg, 1 in 1d), intraperitoneal
     Route: 033
  6. TOBRAMYCIN [Suspect]
     Indication: PSEUDOMONAS INFECTION
     Dosage: 4.5 mg/kg (1.5 mg/kg, 1 in 8 hr), intraperitoneal
     Route: 033
  7. MEROPENEM (MEROPENEM) [Suspect]
     Indication: PSEUDOMONAS INFECTION
     Dosage: 10 mg/kg (10 mg/kg, 1 in 1 d), unknown
  8. COLISTIN [Suspect]
     Indication: PSEUDOMONAS INFECTION
     Dosage: 5 mg/kg  (2.5 mg/kg, 2 in 1 d), intravenous
     Route: 042
  9. COLISTIN [Suspect]
     Indication: PSEUDOMONAS INFECTION
     Dosage: 6 mg/kg (2 mg/kg, 1 in 8 hr), oral
     Route: 048
  10. NYSTATIN [Suspect]
     Indication: PSEUDOMONAS INFECTION
     Dosage: 500,000 units oral suspension q 8 hours, oral
     Route: 048
  11. MEROPENEM (MEROPENEM) [Concomitant]
  12. VANCOMYCIN (VANCOMYCIN) [Concomitant]
  13. METRONIDAZOLE (METRONIDAZOLE) [Concomitant]
  14. AMPHOTERICIN B (AMPHOTERICIN B) [Concomitant]
  15. SULFAMETHOXAZOLE W/TRIMETHOPRIM (BACTRIM) [Concomitant]

REACTIONS (2)
  - Drug resistance [None]
  - No therapeutic response [None]
